FAERS Safety Report 24383626 (Version 1)
Quarter: 2024Q3

REPORT INFORMATION
  Report Type: Spontaneous
  Country: ZA (occurrence: None)
  Receive Date: 20240930
  Receipt Date: 20240930
  Transmission Date: 20241017
  Serious: Yes (Other)
  Sender: Public
  Company Number: None

PATIENT
  Age: 62 Year
  Sex: Female
  Weight: 65 kg

DRUGS (5)
  1. KEPPRA [Suspect]
     Active Substance: LEVETIRACETAM
     Indication: Seizure
     Dosage: 1 TABLET TWICE A DAY ORAL ?
     Route: 048
  2. CALCIUM [Concomitant]
     Active Substance: CALCIUM
  3. ZINC [Concomitant]
     Active Substance: ZINC
  4. MAGNESIUM [Concomitant]
     Active Substance: MAGNESIUM
  5. JWH-018 [Concomitant]
     Active Substance: JWH-018

REACTIONS (4)
  - Dizziness [None]
  - Loss of consciousness [None]
  - Vertigo [None]
  - Syncope [None]

NARRATIVE: CASE EVENT DATE: 20240930
